FAERS Safety Report 13685093 (Version 1)
Quarter: 2017Q2

REPORT INFORMATION
  Report Type: Spontaneous
  Country: US (occurrence: US)
  Receive Date: 20170623
  Receipt Date: 20170623
  Transmission Date: 20170830
  Serious: No
  Sender: FDA-Public Use
  Company Number: US-BAYER-2017-117210

PATIENT
  Sex: Female

DRUGS (1)
  1. MIRALAX [Suspect]
     Active Substance: POLYETHYLENE GLYCOL 3350
     Indication: COLONOSCOPY
     Dosage: UNK
     Route: 065

REACTIONS (6)
  - Rash generalised [Unknown]
  - Hypersensitivity [Unknown]
  - Pruritus [Unknown]
  - Urticaria [Unknown]
  - Rash [Unknown]
  - Off label use [Unknown]
